APPROVED DRUG PRODUCT: SULINDAC
Active Ingredient: SULINDAC
Strength: 200MG
Dosage Form/Route: TABLET;ORAL
Application: A072973 | Product #001
Applicant: ANI PHARMACEUTICALS INC
Approved: Feb 28, 1992 | RLD: No | RS: No | Type: DISCN